FAERS Safety Report 8092396-7 (Version None)
Quarter: 2012Q1

REPORT INFORMATION
  Report Type: 
  Country: None (occurrence: None)
  Receive Date: 20120128
  Receipt Date: 20110831
  Transmission Date: 20120608
  Serious: No
  Sender: FDA-Public Use
  Company Number: US-ABBOTT-11P-163-0850858-00

PATIENT
  Age: 64 Year
  Sex: Male

DRUGS (10)
  1. TRICOR [Concomitant]
     Indication: BLOOD TRIGLYCERIDES INCREASED
     Dosage: DAILY
  2. ACTOS [Concomitant]
     Indication: DIABETES MELLITUS
     Dosage: DAILY
  3. SORIATANE [Concomitant]
     Indication: PSORIASIS
     Dosage: DAILY
  4. JANUVA [Concomitant]
     Indication: DIABETES MELLITUS
     Dosage: DAILY
  5. LIPITOR [Concomitant]
     Indication: BLOOD CHOLESTEROL INCREASED
     Dosage: DAILIY
  6. UNKNOWN MEDICATION [Concomitant]
     Indication: PSORIASIS
     Route: 061
  7. MELOXICAM [Concomitant]
     Indication: PSORIATIC ARTHROPATHY
     Dosage: DAILY
  8. HUMIRA [Suspect]
     Indication: PSORIATIC ARTHROPATHY
     Dates: start: 20110819
  9. LEVOTHYROXINE SODIUM [Concomitant]
     Indication: BLOOD THYROID STIMULATING HORMONE DECREASED
     Dosage: DAILY
  10. LORATADINE [Concomitant]
     Indication: HYPERSENSITIVITY
     Dosage: OVER THE COUNTER, DAILY

REACTIONS (1)
  - PSORIATIC ARTHROPATHY [None]
